FAERS Safety Report 25624370 (Version 1)
Quarter: 2025Q3

REPORT INFORMATION
  Report Type: Spontaneous
  Country: EU (occurrence: EU)
  Receive Date: 20250730
  Receipt Date: 20250730
  Transmission Date: 20251020
  Serious: Yes (Hospitalization)
  Sender: NOVARTIS
  Company Number: None

PATIENT
  Age: 75 Year
  Sex: Female

DRUGS (12)
  1. TEGRETOL [Suspect]
     Active Substance: CARBAMAZEPINE
     Indication: Trigeminal neuralgia
     Dosage: 400 MG, Q8H
     Route: 048
     Dates: start: 20250710, end: 20250711
  2. RIVOTRIL [Concomitant]
     Active Substance: CLONAZEPAM
     Indication: Trigeminal neuralgia
     Dosage: 1 DOSAGE FORM, QD
     Route: 048
     Dates: start: 20250710
  3. AUGMENTIN [Concomitant]
     Active Substance: AMOXICILLIN\CLAVULANATE POTASSIUM
     Indication: Sinusitis
     Dosage: 1 DOSAGE FORM, QD (1 G/125 MG ADULTS, POWDER FOR ORAL SUSPENSION IN SACHET (AMOXICILLIN/CLAVULANIC A
     Route: 048
     Dates: start: 20250709, end: 20250716
  4. XARELTO [Concomitant]
     Active Substance: RIVAROXABAN
     Indication: Atrial fibrillation
     Dosage: 1 DOSAGE FORM, QD (20 MG FILM-COATED TABLETS)
     Route: 048
  5. NEBIVOLOL [Concomitant]
     Active Substance: NEBIVOLOL
     Indication: Atrial fibrillation
     Dosage: 1 DOSAGE FORM, QD (5 MG, QUADRA-SCORED TABLET)
     Route: 048
  6. LIPTRUZET [Concomitant]
     Active Substance: ATORVASTATIN CALCIUM\EZETIMIBE
     Indication: Dyslipidaemia
     Dosage: 1 DOSAGE FORM, QD (10 MG/40 MG, FILM-COATED TABLET)
     Route: 048
  7. JARDIANCE [Concomitant]
     Active Substance: EMPAGLIFLOZIN
     Indication: Cardiac failure
     Dosage: 1 DOSAGE FORM, QD (10 MG FILM-COATED TABLET)
     Route: 048
  8. INSPRA [Concomitant]
     Active Substance: EPLERENONE
     Indication: Cardiac failure
     Dosage: 1 DOSAGE FORM, QD (25 MG, COMPRIM? PELLICUL?)
     Route: 048
  9. ENTRESTO [Concomitant]
     Active Substance: SACUBITRIL\VALSARTAN
     Indication: Cardiac failure
     Dosage: 1 DOSAGE FORM, QD (49 MG/51 MG, FILM-COATED TABLET)
     Route: 048
  10. LEVOTHYROXINE [Concomitant]
     Active Substance: LEVOTHYROXINE
     Indication: Hypothyroidism
     Dosage: 1 DOSAGE FORM, QD (75 MICROGRAMMES, COMPRIM? S?CABLE)
     Route: 048
  11. ASPIRIN [Concomitant]
     Active Substance: ASPIRIN
     Indication: Cardiovascular event prophylaxis
     Dosage: 1 DOSAGE FORM, QD (75 MG, GASTRO-RESISTANT TABLET)
     Route: 048
  12. PANTOPRAZOLE [Concomitant]
     Active Substance: PANTOPRAZOLE
     Indication: Prophylaxis against gastrointestinal ulcer
     Dosage: 40 MG, QD
     Route: 048

REACTIONS (3)
  - Vomiting [Recovered/Resolved]
  - Dysarthria [Recovered/Resolved]
  - Vertigo [Recovered/Resolved]

NARRATIVE: CASE EVENT DATE: 20250711
